FAERS Safety Report 5288416-5 (Version None)
Quarter: 2007Q2

REPORT INFORMATION
  Report Type: 
  Country: None (occurrence: None)
  Receive Date: 20070405
  Receipt Date: 20070326
  Transmission Date: 20071010
  Serious: Yes (Other)
  Sender: FDA-Public Use
  Company Number: JP-MERCK-0703USA04613

PATIENT
  Age: 31 Year
  Sex: Female

DRUGS (6)
  1. DECADRON [Suspect]
     Route: 048
  2. CYTARABINE [Suspect]
     Route: 051
  3. ADRIAMYCIN PFS [Suspect]
     Route: 042
  4. ONCOVIN [Suspect]
     Route: 042
  5. METHOTREXATE [Suspect]
     Route: 065
  6. CYTARABINE [Suspect]
     Route: 051

REACTIONS (3)
  - CEREBRAL VENOUS THROMBOSIS [None]
  - RENAL INFARCT [None]
  - VENOUS THROMBOSIS LIMB [None]
